FAERS Safety Report 7548711-3 (Version None)
Quarter: 2011Q2

REPORT INFORMATION
  Report Type: 
  Country: None (occurrence: None)
  Receive Date: 20110608
  Receipt Date: 20110523
  Transmission Date: 20111010
  Serious: Yes (Other)
  Sender: FDA-Public Use
  Company Number: 2010MA003022

PATIENT
  Sex: Male
  Weight: 101.6057 kg

DRUGS (28)
  1. ELAVIL [Concomitant]
  2. SEROQUEL [Concomitant]
  3. TETRABENAZINE [Concomitant]
  4. METOCLOPRAMIDE [Suspect]
     Dosage: 10 MG; PO
     Route: 048
     Dates: start: 20071001, end: 20081201
  5. ACIPHEX [Concomitant]
  6. BENADRYL [Concomitant]
  7. PLAVIX [Concomitant]
  8. CARAFATE [Concomitant]
  9. BENZTROPINE MESYLATE [Concomitant]
  10. LOPID [Concomitant]
  11. COGENTIN [Concomitant]
  12. REQUIP [Concomitant]
  13. LASIX [Concomitant]
  14. ZETIA [Concomitant]
  15. PRINIVIL [Concomitant]
  16. PRISTIQ [Concomitant]
  17. MIRAPEX [Concomitant]
  18. FLOMAX [Concomitant]
  19. PERMAX [Concomitant]
  20. ARTANE [Concomitant]
  21. XENAXINE [Concomitant]
  22. FOLIC ACID [Concomitant]
  23. LOPRESSOR [Concomitant]
  24. IMDUR [Concomitant]
  25. SAW PALMETTO [Concomitant]
  26. RESTORIL [Concomitant]
  27. SYNTHROID [Concomitant]
  28. VICODIN [Concomitant]

REACTIONS (8)
  - SOMNOLENCE [None]
  - TARDIVE DYSKINESIA [None]
  - EXTRAPYRAMIDAL DISORDER [None]
  - RETCHING [None]
  - BLEPHAROSPASM [None]
  - ECONOMIC PROBLEM [None]
  - DYSARTHRIA [None]
  - FATIGUE [None]
